FAERS Safety Report 15044000 (Version 4)
Quarter: 2018Q3

REPORT INFORMATION
  Report Type: Spontaneous
  Country: JP (occurrence: JP)
  Receive Date: 20180621
  Receipt Date: 20180717
  Transmission Date: 20181010
  Serious: Yes (Other)
  Sender: FDA-Public Use
  Company Number: JP-GLAXOSMITHKLINE-JP2018JPN107325

PATIENT
  Age: 60 Year
  Sex: Male

DRUGS (3)
  1. AIMIX [Concomitant]
     Active Substance: AMLODIPINE BESYLATE\IRBESARTAN
     Indication: HYPERTENSION
     Dosage: UNK
     Dates: start: 2015
  2. ALLERMIST [Suspect]
     Active Substance: FLUTICASONE FUROATE
     Indication: NASAL CONGESTION
  3. ALLERMIST [Suspect]
     Active Substance: FLUTICASONE FUROATE
     Indication: RHINITIS ALLERGIC
     Dosage: 110 ?G, QD
     Route: 045
     Dates: start: 20180514, end: 20180524

REACTIONS (7)
  - Angioedema [Recovering/Resolving]
  - Pruritus generalised [Recovering/Resolving]
  - Urticaria [Recovered/Resolved]
  - Rash generalised [Recovering/Resolving]
  - Swelling face [Recovering/Resolving]
  - Erythema [Recovering/Resolving]
  - Treatment noncompliance [Unknown]

NARRATIVE: CASE EVENT DATE: 201805
